FAERS Safety Report 18629236 (Version 1)
Quarter: 2020Q4

REPORT INFORMATION
  Report Type: Spontaneous
  Country: US (occurrence: US)
  Receive Date: 20201217
  Receipt Date: 20201217
  Transmission Date: 20210114
  Serious: Yes (Disabling, Other)
  Sender: FDA-Public Use
  Company Number: US-PURDUE-USA-2020-0166839

PATIENT
  Sex: Female

DRUGS (2)
  1. OXYCONTIN [Suspect]
     Active Substance: OXYCODONE HYDROCHLORIDE
     Indication: PAIN
     Dosage: UNK
     Route: 048
  2. PERCOCET                           /00446701/ [Suspect]
     Active Substance: ACETAMINOPHEN\OXYCODONE HYDROCHLORIDE\OXYCODONE TEREPHTHALATE
     Indication: BREAKTHROUGH PAIN
     Dosage: UNK
     Route: 065

REACTIONS (14)
  - Disability [Unknown]
  - Drug tolerance [Unknown]
  - Personality change [Unknown]
  - Drug dependence [Recovered/Resolved]
  - Anxiety [Unknown]
  - Incorrect route of product administration [Unknown]
  - Depression [Unknown]
  - Mood swings [Unknown]
  - Sexual dysfunction [Unknown]
  - Tooth loss [Unknown]
  - Drug abuse [Unknown]
  - Dry mouth [Unknown]
  - Overdose [Unknown]
  - Withdrawal syndrome [Unknown]
